FAERS Safety Report 20655259 (Version 1)
Quarter: 2022Q1

REPORT INFORMATION
  Report Type: Spontaneous
  Country: US (occurrence: None)
  Receive Date: 20220330
  Receipt Date: 20220330
  Transmission Date: 20220424
  Serious: No
  Sender: FDA-Public Use
  Company Number: None

PATIENT
  Sex: Female

DRUGS (1)
  1. HUMIRA [Suspect]
     Active Substance: ADALIMUMAB
     Indication: Colitis ulcerative
     Dosage: OTHER QUANTITY : 80MG/0.8ML;?OTHER FREQUENCY : STARTER;?
     Route: 058
     Dates: start: 20220329

REACTIONS (3)
  - Device malfunction [None]
  - Drug dose omission by device [None]
  - Wrong technique in device usage process [None]
